FAERS Safety Report 7006681-0 (Version None)
Quarter: 2010Q3

REPORT INFORMATION
  Report Type: 
  Country: None (occurrence: None)
  Receive Date: 20100921
  Receipt Date: 20100903
  Transmission Date: 20110219
  Serious: Yes (Other)
  Sender: FDA-Public Use
  Company Number: PHHY2010IR61543

PATIENT
  Age: 21 Year
  Sex: Male

DRUGS (2)
  1. INTERFERON BETA-1B [Suspect]
     Indication: RELAPSING-REMITTING MULTIPLE SCLEROSIS
     Dosage: UNK
     Route: 058
  2. INTERFERON BETA-1A [Suspect]
     Indication: RELAPSING-REMITTING MULTIPLE SCLEROSIS
     Dosage: UNK

REACTIONS (1)
  - THROMBOCYTOPENIC PURPURA [None]
